FAERS Safety Report 9013162 (Version 1)
Quarter: 2013Q1

REPORT INFORMATION
  Report Type: Spontaneous
  Country: US (occurrence: US)
  Receive Date: 20130115
  Receipt Date: 20130115
  Transmission Date: 20140127
  Serious: No
  Sender: FDA-Public Use
  Company Number: US-BIOGENIDEC-2013BI002582

PATIENT
  Age: 28 Year
  Sex: Female

DRUGS (1)
  1. TYSABRI [Suspect]
     Indication: MULTIPLE SCLEROSIS
     Route: 042
     Dates: start: 20120925

REACTIONS (7)
  - Neuralgia [Recovered/Resolved]
  - Myalgia [Recovered/Resolved]
  - Motor dysfunction [Recovered/Resolved]
  - Memory impairment [Recovered/Resolved]
  - Migraine [Recovered/Resolved]
  - Burning sensation [Recovered/Resolved]
  - Fatigue [Recovered/Resolved]
